FAERS Safety Report 11678973 (Version 2)
Quarter: 2015Q4

REPORT INFORMATION
  Report Type: Spontaneous
  Country: US (occurrence: US)
  Receive Date: 20151028
  Receipt Date: 20151029
  Transmission Date: 20160304
  Serious: Yes (Other)
  Sender: FDA-Public Use
  Company Number: US-TEIKOKU PHARMA USA, INC.-1043522

PATIENT
  Age: 84 Year
  Sex: Female
  Weight: 59.09 kg

DRUGS (2)
  1. LIDODERM [Suspect]
     Active Substance: LIDOCAINE
     Indication: MUSCULOSKELETAL PAIN
     Route: 061
     Dates: start: 2010
  2. LIDOCAINE PATCH [Suspect]
     Active Substance: LIDOCAINE
     Route: 061
     Dates: end: 20151008

REACTIONS (4)
  - Hip arthroplasty [Recovered/Resolved]
  - Hip arthroplasty [Recovered/Resolved]
  - Staphylococcal infection [Recovered/Resolved]
  - Drug ineffective for unapproved indication [Not Recovered/Not Resolved]

NARRATIVE: CASE EVENT DATE: 20110701
